FAERS Safety Report 9304572 (Version 1)
Quarter: 2013Q2

REPORT INFORMATION
  Report Type: Report from Study
  Country: FR (occurrence: FR)
  Receive Date: 20130523
  Receipt Date: 20130523
  Transmission Date: 20140414
  Serious: Yes (Hospitalization)
  Sender: FDA-Public Use
  Company Number: FR-ROCHE-1225391

PATIENT
  Sex: Male

DRUGS (3)
  1. BEVACIZUMAB [Suspect]
     Indication: COLON CANCER
     Route: 065
  2. 5-FLUOROURACIL [Suspect]
     Indication: COLON CANCER
     Route: 065
  3. FOLINIC ACID [Suspect]
     Indication: COLON CANCER
     Route: 065

REACTIONS (2)
  - Abdominal pain [Recovering/Resolving]
  - Gastrointestinal hypomotility [Recovering/Resolving]
